FAERS Safety Report 25072341 (Version 3)
Quarter: 2025Q3

REPORT INFORMATION
  Report Type: Spontaneous
  Country: CA (occurrence: CA)
  Receive Date: 20250313
  Receipt Date: 20250829
  Transmission Date: 20251021
  Serious: Yes (Death, Other)
  Sender: ORGANON
  Company Number: CA-ORGANON-O2503CAN000973

PATIENT
  Age: 35 Year
  Sex: Male

DRUGS (1)
  1. PROPECIA [Suspect]
     Active Substance: FINASTERIDE
     Indication: Alopecia
     Route: 048

REACTIONS (9)
  - Anhedonia [Fatal]
  - Anxiety [Fatal]
  - Brain fog [Fatal]
  - Completed suicide [Fatal]
  - Fatigue [Fatal]
  - Malaise [Fatal]
  - Post 5-alpha-reductase inhibitor syndrome [Fatal]
  - Sexual dysfunction [Fatal]
  - Tinnitus [Fatal]
